FAERS Safety Report 13163706 (Version 1)
Quarter: 2017Q1

REPORT INFORMATION
  Report Type: Spontaneous
  Country: GB (occurrence: GB)
  Receive Date: 20170130
  Receipt Date: 20170130
  Transmission Date: 20170428
  Serious: Yes (Hospitalization, Other)
  Sender: FDA-Public Use
  Company Number: GB-MEDA-2017010096

PATIENT
  Age: 50 Year

DRUGS (3)
  1. ZOLPIDEM [Suspect]
     Active Substance: ZOLPIDEM\ZOLPIDEM TARTRATE
  2. DIAZEPAM. [Suspect]
     Active Substance: DIAZEPAM
  3. HALOPERIDOL. [Suspect]
     Active Substance: HALOPERIDOL

REACTIONS (5)
  - Electrocardiogram J wave [Recovered/Resolved]
  - Electrocardiogram QT prolonged [Recovered/Resolved]
  - Sinus bradycardia [Recovered/Resolved]
  - Hypothermia [Unknown]
  - Hyporesponsive to stimuli [Unknown]
